FAERS Safety Report 6567785-X (Version None)
Quarter: 2010Q1

REPORT INFORMATION
  Report Type: 
  Country: None (occurrence: None)
  Receive Date: 20100203
  Receipt Date: 20100125
  Transmission Date: 20100710
  Serious: Yes (Other)
  Sender: FDA-Public Use
  Company Number: JP-ASTRAZENECA-2010SE03878

PATIENT
  Age: 83 Year
  Sex: Male

DRUGS (1)
  1. BLOPRESS [Suspect]
     Route: 048
     Dates: start: 20070901, end: 20080501

REACTIONS (1)
  - INTERSTITIAL LUNG DISEASE [None]
